FAERS Safety Report 25207868 (Version 1)
Quarter: 2025Q2

REPORT INFORMATION
  Report Type: Spontaneous
  Country: FR (occurrence: FR)
  Receive Date: 20250417
  Receipt Date: 20250417
  Transmission Date: 20250716
  Serious: Yes (Hospitalization)
  Sender: BIOGEN
  Company Number: FR-BIOGEN-2025BI01307254

PATIENT
  Age: 41 Year
  Sex: Female
  Weight: 114 kg

DRUGS (1)
  1. TECFIDERA [Suspect]
     Active Substance: DIMETHYL FUMARATE
     Indication: Relapsing-remitting multiple sclerosis
     Route: 050
     Dates: start: 20230511, end: 20250322

REACTIONS (1)
  - Encephalitis herpes [Not Recovered/Not Resolved]

NARRATIVE: CASE EVENT DATE: 20250322
